FAERS Safety Report 6626032-0 (Version None)
Quarter: 2010Q1

REPORT INFORMATION
  Report Type: 
  Country: None (occurrence: None)
  Receive Date: 20100310
  Receipt Date: 20100224
  Transmission Date: 20100710
  Serious: Yes (Other)
  Sender: FDA-Public Use
  Company Number: JP-PFIZER INC-2010027372

PATIENT
  Age: 40 Year
  Sex: Female
  Weight: 50 kg

DRUGS (11)
  1. ALPRAZOLAM [Suspect]
  2. LIDOCAINE HYDROCHLORIDE [Suspect]
  3. CLONAZEPAM [Suspect]
  4. KETAMINE HYDROCHLORIDE [Suspect]
     Dosage: 10 MG, AS NEEDED
     Route: 048
  5. CARBAMAZEPINE [Suspect]
     Dosage: 200 MG, 1X/DAY
  6. VALPROATE SODIUM [Suspect]
  7. BROTIZOLAM [Suspect]
  8. MEXILETINE [Suspect]
  9. ETODOLAC [Suspect]
  10. EPERISONE [Suspect]
  11. DIBUCAINE [Suspect]
     Dosage: 0.4 ML, UNK

REACTIONS (10)
  - ACTIVITIES OF DAILY LIVING IMPAIRED [None]
  - BACK PAIN [None]
  - DIZZINESS [None]
  - EAR PAIN [None]
  - GASTRIC ULCER [None]
  - HEADACHE [None]
  - MALAISE [None]
  - NAUSEA [None]
  - NEURALGIA [None]
  - SOMNOLENCE [None]
